FAERS Safety Report 4322130-5 (Version None)
Quarter: 2004Q1

REPORT INFORMATION
  Report Type: 
  Country: None (occurrence: None)
  Receive Date: 20040323
  Receipt Date: 20040316
  Transmission Date: 20041129
  Serious: No
  Sender: FDA-Public Use
  Company Number: PHEH2004US03083

PATIENT
  Age: 81 Year
  Sex: Female

DRUGS (7)
  1. LAMISIL [Suspect]
     Indication: MEDICATION ERROR
     Dosage: 250 MG, QD
     Route: 048
     Dates: start: 20040215
  2. LAMISIL [Suspect]
     Dosage: 250 MG, BID
     Route: 048
  3. LAMISIL [Suspect]
     Dosage: 250 MG, TID
     Route: 048
     Dates: end: 20040311
  4. ATENOLOL [Concomitant]
  5. RAMIPRIL [Concomitant]
  6. TIAZAC [Concomitant]
  7. ARICEPT [Concomitant]

REACTIONS (4)
  - ANOREXIA [None]
  - ASTHENIA [None]
  - LETHARGY [None]
  - MEDICATION ERROR [None]
